FAERS Safety Report 25850457 (Version 3)
Quarter: 2025Q4

REPORT INFORMATION
  Report Type: Spontaneous
  Country: EU (occurrence: EU)
  Receive Date: 20250926
  Receipt Date: 20251121
  Transmission Date: 20260117
  Serious: Yes (Other)
  Sender: AUROBINDO
  Company Number: EU-PFIZER INC-2021796596

PATIENT
  Age: 71 Year
  Sex: Female

DRUGS (1)
  1. LEVOFLOXACIN [Suspect]
     Active Substance: LEVOFLOXACIN
     Indication: Product used for unknown indication
     Dosage: UNK
     Route: 065

REACTIONS (8)
  - Drug eruption [Unknown]
  - Anaphylactic reaction [Recovering/Resolving]
  - Coma [Recovering/Resolving]
  - Malaise [Recovering/Resolving]
  - Drug hypersensitivity [Recovering/Resolving]
  - Angioedema [Unknown]
  - Hypotension [Unknown]
  - Urticaria [Unknown]
